FAERS Safety Report 5023524-5 (Version None)
Quarter: 2006Q2

REPORT INFORMATION
  Report Type: 
  Country: None (occurrence: None)
  Receive Date: 20060612
  Receipt Date: 20060602
  Transmission Date: 20061013
  Serious: Yes (Hospitalization)
  Sender: FDA-Public Use
  Company Number: FR-GLAXOSMITHKLINE-B0426209A

PATIENT
  Age: 71 Year
  Sex: Female
  Weight: 54 kg

DRUGS (8)
  1. ALKERAN [Suspect]
     Indication: MULTIPLE MYELOMA
     Dosage: 2MG FOUR TIMES PER DAY
     Route: 048
     Dates: start: 20060113, end: 20060116
  2. DECTANCYL [Suspect]
     Indication: MULTIPLE MYELOMA
     Dosage: 20MG PER DAY
     Route: 048
     Dates: start: 20060113, end: 20060116
  3. PANTOPRAZOLE SODIUM [Concomitant]
     Route: 065
     Dates: start: 20051227
  4. STILNOX [Concomitant]
     Route: 065
     Dates: start: 20051227
  5. DEROXAT [Concomitant]
     Route: 065
     Dates: start: 20051227
  6. ZOMETA [Concomitant]
     Route: 065
     Dates: start: 20051228
  7. LOVENOX [Concomitant]
     Route: 065
     Dates: start: 20051228
  8. RIVOTRIL [Concomitant]
     Route: 065
     Dates: start: 20060101

REACTIONS (1)
  - MANIA [None]
